FAERS Safety Report 10901138 (Version 3)
Quarter: 2016Q1

REPORT INFORMATION
  Report Type: Report from Study
  Country: CN (occurrence: CN)
  Receive Date: 20150310
  Receipt Date: 20160302
  Transmission Date: 20160525
  Serious: Yes (Death, Life-Threatening, Other)
  Sender: FDA-Public Use
  Company Number: CN-PFIZER INC-2015028352

PATIENT
  Age: 81 Year
  Sex: Male
  Weight: 54 kg

DRUGS (34)
  1. HUMAN ALBUMIN ^BEHRING^ [Concomitant]
     Dosage: 10 G, 1X/DAY
     Route: 041
     Dates: start: 20150126, end: 20150126
  2. IMIPENEM AND CILASTATIN SODIUM [Concomitant]
     Active Substance: CILASTATIN SODIUM\IMIPENEM
     Indication: LUNG INFECTION
     Dosage: 500 MG, Q6H
     Route: 041
     Dates: start: 20150126
  3. SUCCINYLATED GELATIN [Concomitant]
     Active Substance: SUCCINYLATED GELATIN
     Indication: LARGE INTESTINE PERFORATION
     Dosage: 20 G, 1X/DAY
     Route: 041
     Dates: start: 20150119, end: 20150120
  4. FUROSEMIDE. [Concomitant]
     Active Substance: FUROSEMIDE
     Indication: POLYURIA
     Dosage: 20 MG, 1X/DAY
     Route: 041
     Dates: start: 20150120, end: 20150121
  5. METHYLPREDNISOLONE. [Concomitant]
     Active Substance: METHYLPREDNISOLONE
     Indication: PROPHYLAXIS
     Dosage: 40 MG, SINGLE
     Route: 041
     Dates: start: 20150121, end: 20150121
  6. TORASEMIDE [Concomitant]
     Active Substance: TORSEMIDE
     Indication: POLYURIA
     Dosage: 5 MG, SINGLE
     Route: 041
     Dates: start: 20150121, end: 20150121
  7. CALCIUM GLUCONATE. [Concomitant]
     Active Substance: CALCIUM GLUCONATE
     Indication: NUTRITIONAL SUPPLEMENTATION
     Dosage: 10 ML, SINGLE
     Route: 041
     Dates: start: 20150125, end: 20150125
  8. POTASSIUM CHLORIDE. [Concomitant]
     Active Substance: POTASSIUM CHLORIDE
     Indication: NUTRITIONAL SUPPLEMENTATION
     Dosage: 2 G, 1X/DAY
     Route: 041
     Dates: start: 20150121, end: 20150121
  9. MULTI-VITAMINS VITAFIT [Concomitant]
     Indication: LARGE INTESTINE PERFORATION
     Dosage: 1 BOTTLE, 1X/DAY
     Route: 041
     Dates: start: 20150119
  10. TRAMADOL. [Concomitant]
     Active Substance: TRAMADOL
     Indication: ANALGESIC THERAPY
     Dosage: 100 MG, SINGLE
     Route: 030
     Dates: start: 20150119, end: 20150119
  11. FUROSEMIDE. [Concomitant]
     Active Substance: FUROSEMIDE
     Indication: PROPHYLAXIS
     Dosage: 10 MG, SINGLE
     Route: 041
     Dates: start: 20150123, end: 20150123
  12. METHYLPREDNISOLONE. [Concomitant]
     Active Substance: METHYLPREDNISOLONE
     Dosage: 40 MG, 2X/DAY
     Route: 041
     Dates: start: 20150124, end: 20150124
  13. LENTINAN [Concomitant]
     Active Substance: LENTINAN
     Indication: LARGE INTESTINE PERFORATION
     Dosage: 1 MG, 1X/DAY
     Route: 041
     Dates: start: 20150119
  14. VITAMIN B1 [Concomitant]
     Active Substance: THIAMINE HYDROCHLORIDE
     Indication: LARGE INTESTINE PERFORATION
     Dosage: 100 MG, 1X/DAY
     Route: 030
     Dates: start: 20150120
  15. HUMAN ALBUMIN ^BEHRING^ [Concomitant]
     Indication: LARGE INTESTINE PERFORATION
     Dosage: 20 G, 1X/DAY
     Route: 041
     Dates: start: 20150119, end: 20150121
  16. FUROSEMIDE. [Concomitant]
     Active Substance: FUROSEMIDE
     Dosage: 5 MG, SINGLE
     Route: 041
     Dates: start: 20150125, end: 20150125
  17. FUROSEMIDE. [Concomitant]
     Active Substance: FUROSEMIDE
     Dosage: 10 MG, SINGLE
     Route: 041
     Dates: start: 20150127, end: 20150130
  18. TORASEMIDE [Concomitant]
     Active Substance: TORSEMIDE
     Dosage: 5 MG, SINGLE
     Route: 041
     Dates: start: 20150127, end: 20150127
  19. TIGECYCLINE. [Suspect]
     Active Substance: TIGECYCLINE
     Indication: LARGE INTESTINE PERFORATION
     Dosage: UNK
     Route: 041
     Dates: start: 20150119, end: 20150126
  20. HUMAN ALBUMIN ^BEHRING^ [Concomitant]
     Dosage: 10 G, 2X/DAY
     Route: 041
     Dates: start: 201501, end: 20150130
  21. CALCIUM GLUCONATE. [Concomitant]
     Active Substance: CALCIUM GLUCONATE
     Dosage: 20 ML, SINGLE
     Route: 041
     Dates: start: 20150126, end: 20150126
  22. CEFOPERAZONE SODIUM AND TAZOBACTAM SODIUM [Concomitant]
     Active Substance: CEFOPERAZONE\TAZOBACTAM SODIUM
     Indication: LUNG INFECTION
     Dosage: 3 G, Q12H
     Route: 041
     Dates: start: 20150209
  23. PANTOPRAZOLE [Concomitant]
     Active Substance: PANTOPRAZOLE SODIUM
     Dosage: 60 MG, 2X/DAY
     Route: 041
     Dates: start: 20150122, end: 20150129
  24. POTASSIUM CHLORIDE. [Concomitant]
     Active Substance: POTASSIUM CHLORIDE
     Indication: LARGE INTESTINE PERFORATION
     Dosage: 2.5 G, 1X/DAY
     Route: 041
     Dates: start: 20150119, end: 201501
  25. HUMAN ALBUMIN ^BEHRING^ [Concomitant]
     Dosage: 10 G, 1X/DAY
     Route: 041
     Dates: start: 20150122, end: 20150122
  26. TORASEMIDE [Concomitant]
     Active Substance: TORSEMIDE
     Dosage: 10 MG, SINGLE
     Route: 041
     Dates: start: 20150124, end: 20150124
  27. AMBROXOL [Concomitant]
     Active Substance: AMBROXOL
     Indication: LARGE INTESTINE PERFORATION
     Dosage: 120 MG, 2X/DAY
     Route: 041
     Dates: start: 20150119
  28. ALANYL-GLUTAMINE [Concomitant]
     Indication: LARGE INTESTINE PERFORATION
     Dosage: 20 G, 1X/DAY
     Route: 041
     Dates: start: 20150119
  29. DEXMEDETOMIDINE. [Concomitant]
     Active Substance: DEXMEDETOMIDINE
     Indication: ANALGESIC THERAPY
     Dosage: 0.2 MG, 2X/DAY
     Route: 041
     Dates: start: 20150124, end: 20150124
  30. PANTOPRAZOLE [Concomitant]
     Active Substance: PANTOPRAZOLE SODIUM
     Indication: LARGE INTESTINE PERFORATION
     Dosage: 60 MG, 2X/DAY
     Route: 041
     Dates: start: 20150119, end: 20150119
  31. TRAMADOL. [Concomitant]
     Active Substance: TRAMADOL
     Dosage: 100 MG, SINGLE
     Route: 030
     Dates: start: 20150121, end: 20150121
  32. TORASEMIDE [Concomitant]
     Active Substance: TORSEMIDE
     Indication: PROPHYLAXIS
     Dosage: 15 MG, SINGLE
     Route: 041
     Dates: start: 20150122, end: 20150122
  33. CALCIUM GLUCONATE. [Concomitant]
     Active Substance: CALCIUM GLUCONATE
     Dosage: 20 ML, SINGLE
     Route: 041
     Dates: start: 20150130, end: 20150130
  34. LINEZOLID. [Concomitant]
     Active Substance: LINEZOLID
     Indication: LUNG INFECTION
     Dosage: 600 MG, Q12H
     Route: 041
     Dates: start: 20150131

REACTIONS (3)
  - Lung infection [Fatal]
  - Atrial fibrillation [Not Recovered/Not Resolved]
  - Drug ineffective [Fatal]

NARRATIVE: CASE EVENT DATE: 20150121
